FAERS Safety Report 11215984 (Version 5)
Quarter: 2015Q3

REPORT INFORMATION
  Report Type: Spontaneous
  Country: NL (occurrence: NL)
  Receive Date: 20150624
  Receipt Date: 20150710
  Transmission Date: 20151125
  Serious: Yes (Death, Hospitalization)
  Sender: FDA-Public Use
  Company Number: NL-PFIZER INC-2015205661

PATIENT
  Age: 54 Year
  Sex: Male

DRUGS (22)
  1. LORAZEPAM. [Concomitant]
     Active Substance: LORAZEPAM
     Dosage: 5 MG, 1X/DAY
  2. CITALOPRAM [Concomitant]
     Active Substance: CITALOPRAM HYDROBROMIDE
     Dosage: 40 MG, 1X/DAY
  3. METOPROLOLSUCCINAAT [Concomitant]
     Active Substance: METOPROLOL SUCCINATE
     Dosage: 47.5 MG, 1X/DAY
  4. VITAMIN B COMPLEX FORTE [Concomitant]
     Dosage: 1 DF, 3X/DAY
  5. AMLODIPINE [Concomitant]
     Active Substance: AMLODIPINE BESYLATE
     Dosage: 10 MG, 1X/DAY
  6. TRAMADOL. [Concomitant]
     Active Substance: TRAMADOL
     Dosage: 50 MG, 4X/DAY
  7. ACIDUM ASCORBICUM [Concomitant]
     Dosage: 50 MG, 3X/DAY
  8. FUROSEMIDE. [Concomitant]
     Active Substance: FUROSEMIDE
     Dosage: 40 MG, 1X/DAY
  9. ISOSORBIDEMONONITRAAT [Concomitant]
     Dosage: 15 MG, 1X/DAY (SPLITTED TABLET OF 30MG)
  10. LORAZEPAM. [Concomitant]
     Active Substance: LORAZEPAM
     Dosage: 2.5 MG, AS NEEDED (3X/DAY )
  11. OCTREOTIDE. [Concomitant]
     Active Substance: OCTREOTIDE
     Dosage: 40 MG, MONTHLY (1 X PER 4 WEEKS)
  12. OLANZAPINE. [Concomitant]
     Active Substance: OLANZAPINE
     Dosage: 10 MG, 1X/DAY
  13. CITALOPRAM [Concomitant]
     Active Substance: CITALOPRAM HYDROBROMIDE
     Dosage: 10 MG, 1X/DAY
  14. LORAZEPAM. [Concomitant]
     Active Substance: LORAZEPAM
     Dosage: 1.25 MG, 1X/DAY (SPLITTED TABLET OF 2.5MG)
  15. PANTOPRAZOLE SODIUM. [Concomitant]
     Active Substance: PANTOPRAZOLE SODIUM
     Dosage: 40 MG, 1X/DAY
  16. SIMVASTATINE [Concomitant]
     Active Substance: SIMVASTATIN
     Dosage: 40 MG, 1X/DAY IN THE EVENING
  17. SOMAVERT [Suspect]
     Active Substance: PEGVISOMANT
     Indication: ACROMEGALY
     Dosage: 20 MG, CYCLIC (3 INJECTIONS/WEEK)
     Route: 058
     Dates: start: 20120320
  18. CABERGOLINE. [Concomitant]
     Active Substance: CABERGOLINE
     Dosage: UNK
  19. LITHIUMCARBONAAT [Concomitant]
     Dosage: 400 MG, 1X/DAY
  20. VALPROINSAEURE [Concomitant]
     Active Substance: VALPROIC ACID
     Dosage: 2000 MG, 1X/DAY
  21. ACENOCOUMAROL [Concomitant]
     Active Substance: ACENOCOUMAROL
     Dosage: ACCORDING TO THROMBOSIS SERVICE
  22. PARACETAMOL [Concomitant]
     Active Substance: ACETAMINOPHEN
     Dosage: 1000 MG, 4X/DAY

REACTIONS (3)
  - Post procedural complication [Fatal]
  - Large intestine polyp [Unknown]
  - Dolichocolon [Unknown]
